FAERS Safety Report 4761717-2 (Version None)
Quarter: 2005Q3

REPORT INFORMATION
  Report Type: 
  Country: None (occurrence: None)
  Receive Date: 20050906
  Receipt Date: 20050826
  Transmission Date: 20060218
  Serious: Yes (Hospitalization)
  Sender: FDA-Public Use
  Company Number: SE-JNJFOC-20050806497

PATIENT
  Age: 78 Year
  Sex: Male

DRUGS (10)
  1. GALANTAMINE ER [Suspect]
     Indication: DRUG USE FOR UNKNOWN INDICATION
     Route: 048
  2. REMERON [Concomitant]
     Route: 048
  3. HALDOL [Concomitant]
     Route: 065
  4. SALURES [Concomitant]
     Route: 065
  5. SELOKEN [Concomitant]
     Route: 065
  6. TRIOBE [Concomitant]
     Route: 065
  7. TRIOBE [Concomitant]
     Route: 065
  8. TRIOBE [Concomitant]
     Route: 065
  9. SIMVASTATIN [Concomitant]
     Route: 065
  10. LOSARTAN POTASSIUM [Concomitant]
     Route: 065

REACTIONS (3)
  - CHEYNE-STOKES RESPIRATION [None]
  - DEPRESSED LEVEL OF CONSCIOUSNESS [None]
  - HYPERNATRAEMIA [None]
